FAERS Safety Report 6731075-2 (Version None)
Quarter: 2010Q2

REPORT INFORMATION
  Report Type: 
  Country: None (occurrence: None)
  Receive Date: 20100518
  Receipt Date: 20100504
  Transmission Date: 20101027
  Serious: Yes (Other)
  Sender: FDA-Public Use
  Company Number: GB-MYLANLABS-2010S1007966

PATIENT
  Sex: Female

DRUGS (3)
  1. TOPIRAMATE [Suspect]
     Indication: MIGRAINE
     Route: 048
  2. TOPIRAMATE [Suspect]
     Route: 048
  3. TOPIRAMATE [Suspect]
     Route: 048

REACTIONS (9)
  - ANXIETY [None]
  - DEPRESSION [None]
  - DISORIENTATION [None]
  - DYSARTHRIA [None]
  - MEDICATION ERROR [None]
  - MEMORY IMPAIRMENT [None]
  - NAUSEA [None]
  - PARAESTHESIA [None]
  - PHOTOPSIA [None]
